FAERS Safety Report 24442802 (Version 2)
Quarter: 2024Q4

REPORT INFORMATION
  Report Type: Report from Study
  Country: DE (occurrence: DE)
  Receive Date: 20241016
  Receipt Date: 20241017
  Transmission Date: 20250115
  Serious: No
  Sender: ROCHE
  Company Number: DE-ROCHE-3553123

PATIENT
  Age: 59 Year
  Sex: Male
  Weight: 97.0 kg

DRUGS (6)
  1. EMICIZUMAB [Suspect]
     Active Substance: EMICIZUMAB
     Indication: Haemophilia A with anti factor VIII
     Route: 058
     Dates: start: 20210317, end: 20210407
  2. EMICIZUMAB [Suspect]
     Active Substance: EMICIZUMAB
     Route: 058
     Dates: start: 20210414
  3. ELOCTA [Concomitant]
     Active Substance: EFMOROCTOCOG ALFA
     Route: 042
     Dates: start: 202001, end: 202103
  4. ARCOXIA [Concomitant]
     Active Substance: ETORICOXIB
     Indication: Haemophilic arthropathy
     Route: 048
     Dates: start: 2018
  5. METAMIZOLE [Concomitant]
     Active Substance: METAMIZOLE
     Indication: Haemophilic arthropathy
     Route: 048
     Dates: start: 2020
  6. DICLOFENAC [Concomitant]
     Active Substance: DICLOFENAC
     Indication: Headache
     Route: 048
     Dates: start: 20220914

REACTIONS (1)
  - Soft tissue injury [Recovered/Resolved]

NARRATIVE: CASE EVENT DATE: 20230608
